FAERS Safety Report 8180134-9 (Version None)
Quarter: 2012Q1

REPORT INFORMATION
  Report Type: 
  Country: None (occurrence: None)
  Receive Date: 20120229
  Receipt Date: 20120220
  Transmission Date: 20120608
  Serious: Yes (Other)
  Sender: FDA-Public Use
  Company Number: 2011MA012388

PATIENT
  Age: 47 Year
  Sex: Male

DRUGS (5)
  1. FLUOXETINE [Suspect]
     Indication: OBSESSIVE-COMPULSIVE DISORDER
     Dosage: 40 MG, QD
     Dates: start: 20090701
  2. CLOZAPINE [Suspect]
     Indication: OBSESSIVE-COMPULSIVE DISORDER
     Dosage: 300 MG, QD, PO
     Route: 048
     Dates: start: 20090728
  3. CLOZAPINE [Suspect]
     Indication: SCHIZOPHRENIA
     Dosage: 300 MG, QD, PO
     Route: 048
     Dates: start: 20090728
  4. HYOSCINE HYDROBROMIDE [Concomitant]
  5. OMEPRAZOLE [Concomitant]

REACTIONS (10)
  - WEIGHT DECREASED [None]
  - HYPERHIDROSIS [None]
  - ABDOMINAL PAIN [None]
  - BLOOD ALKALINE PHOSPHATASE INCREASED [None]
  - OBSESSIVE-COMPULSIVE DISORDER [None]
  - LETHARGY [None]
  - DECREASED APPETITE [None]
  - DIARRHOEA [None]
  - COUGH [None]
  - DRUG INTERACTION [None]
